FAERS Safety Report 6146790 (Version 4)
Quarter: 2012Q4

REPORT INFORMATION
  Report Type: 
  Country: US (occurrence: US)
  Receive Date: 20061013
  Receipt Date: 20121212
  Transmission Date: 20130627
  Serious: Yes (Hospitalization)
  Sender: FDA-Public Use
  Company Number: US-JNJFOC-20061001867

PATIENT
  Sex: Female
  Weight: 100.7 kg

DRUGS (3)
  1. ORTHO EVRA [Suspect]
     Indication: PRODUCT USED FOR UNKNOWN INDICATION
     Dates: start: 200201
  2. IBUPROFEN [Suspect]
     Indication: BACK PAIN
     Route: 065
  3. IBUPROFEN [Suspect]
     Indication: BACK PAIN
     Dosage: very 3-4 hours
     Route: 065

REACTIONS (2)
  - Nephrotic syndrome [Recovering/Resolving]
  - Deep vein thrombosis [Not Recovered/Not Resolved]
